FAERS Safety Report 21886072 (Version 3)
Quarter: 2023Q2

REPORT INFORMATION
  Report Type: Spontaneous
  Country: JP (occurrence: None)
  Receive Date: 20230119
  Receipt Date: 20230616
  Transmission Date: 20230722
  Serious: Yes (Hospitalization)
  Sender: FDA-Public Use
  Company Number: 2023A009359

PATIENT
  Age: 71 Year
  Sex: Male

DRUGS (4)
  1. DAPAGLIFLOZIN [Suspect]
     Active Substance: DAPAGLIFLOZIN
     Indication: Cardiac failure
     Route: 048
  2. NIVOLUMAB [Suspect]
     Active Substance: NIVOLUMAB
     Indication: Lung neoplasm malignant
     Dosage: DOSE UNKNOWN
     Route: 041
  3. YERVOY [Suspect]
     Active Substance: IPILIMUMAB
     Route: 042
  4. INSULIN NOS [Concomitant]
     Active Substance: INSULIN NOS
     Dosage: DOSE UNKNOWN

REACTIONS (5)
  - Fulminant type 1 diabetes mellitus [Recovering/Resolving]
  - Diabetic ketoacidosis [Recovering/Resolving]
  - Liver disorder [Unknown]
  - Malaise [Unknown]
  - Thyroiditis [Unknown]
